FAERS Safety Report 9255358 (Version 2)
Quarter: 2013Q2

REPORT INFORMATION
  Report Type: Spontaneous
  Country: US (occurrence: None)
  Receive Date: 20130424
  Receipt Date: 20130612
  Transmission Date: 20140414
  Serious: Yes (Death)
  Sender: FDA-Public Use
  Company Number: JPI-P-031294

PATIENT
  Age: 73 Year
  Sex: Male

DRUGS (1)
  1. XYREM [Suspect]
     Indication: CATAPLEXY
     Dosage: (2.25 GM,2 IN 1 D)
     Route: 048
     Dates: start: 20101222

REACTIONS (2)
  - Lung carcinoma cell type unspecified stage IV [None]
  - Metastases to kidney [None]
